FAERS Safety Report 18175495 (Version 5)
Quarter: 2020Q3

REPORT INFORMATION
  Report Type: Spontaneous
  Country: US (occurrence: US)
  Receive Date: 20200820
  Receipt Date: 20200903
  Transmission Date: 20201103
  Serious: No
  Sender: FDA-Public Use
  Company Number: US-PFIZER INC-2020320971

PATIENT
  Age: 72 Year
  Sex: Female
  Weight: 53.07 kg

DRUGS (2)
  1. PREMARIN [Suspect]
     Active Substance: ESTROGENS, CONJUGATED
     Indication: BLADDER OPERATION
     Dosage: UNK
  2. PREMARIN [Suspect]
     Active Substance: ESTROGENS, CONJUGATED
     Indication: BLADDER PROLAPSE

REACTIONS (5)
  - Off label use [Unknown]
  - Thinking abnormal [Unknown]
  - Product use in unapproved indication [Unknown]
  - Confusional state [Unknown]
  - Product prescribing error [Unknown]
